FAERS Safety Report 12944339 (Version 1)
Quarter: 2016Q4

REPORT INFORMATION
  Report Type: Spontaneous
  Country: NL (occurrence: NL)
  Receive Date: 20161115
  Receipt Date: 20161115
  Transmission Date: 20170207
  Serious: Yes (Other)
  Sender: FDA-Public Use
  Company Number: NL-TEVA-711393ISR

PATIENT
  Age: 30 Year
  Sex: Female
  Weight: 65 kg

DRUGS (1)
  1. DIAZEPAM TABLET [Suspect]
     Active Substance: DIAZEPAM
     Indication: MYALGIA
     Dosage: 2 MILLIGRAM DAILY;
     Route: 048
     Dates: start: 20161010

REACTIONS (3)
  - Local swelling [Recovering/Resolving]
  - Off label use [Recovering/Resolving]
  - Eye disorder [Recovering/Resolving]

NARRATIVE: CASE EVENT DATE: 20161010
